FAERS Safety Report 6567876-3 (Version None)
Quarter: 2010Q1

REPORT INFORMATION
  Report Type: 
  Country: None (occurrence: None)
  Receive Date: 20100203
  Receipt Date: 20100121
  Transmission Date: 20100710
  Serious: Yes (Hospitalization, Disabling)
  Sender: FDA-Public Use
  Company Number: PHEH2009US13767

PATIENT
  Sex: Female

DRUGS (3)
  1. EXJADE [Suspect]
     Indication: MYELODYSPLASTIC SYNDROME
     Dosage: 500 MG, UNK
     Route: 048
     Dates: start: 20090223
  2. EXJADE [Suspect]
     Indication: IRON OVERLOAD
  3. SIROLIMUS [Suspect]
     Dosage: UNK
     Route: 048
     Dates: end: 20091008

REACTIONS (4)
  - DEHYDRATION [None]
  - METABOLIC ACIDOSIS [None]
  - RENAL FAILURE [None]
  - VOMITING [None]
